FAERS Safety Report 4355269-9 (Version None)
Quarter: 2004Q2

REPORT INFORMATION
  Report Type: 
  Country: None (occurrence: None)
  Receive Date: 20040506
  Receipt Date: 20040421
  Transmission Date: 20050107
  Serious: Yes (Hospitalization)
  Sender: FDA-Public Use
  Company Number: 04-00187 (1)

PATIENT
  Age: 71 Year
  Sex: Male

DRUGS (2)
  1. LORAZEPAM [Suspect]
     Dosage: ORAL
     Route: 048
  2. OXAZEPAM [Suspect]
     Dosage: ORAL
     Route: 048

REACTIONS (3)
  - AREFLEXIA [None]
  - MEDICATION ERROR [None]
  - MIOSIS [None]
